FAERS Safety Report 16847655 (Version 2)
Quarter: 2019Q4

REPORT INFORMATION
  Report Type: Other
  Country: US (occurrence: US)
  Receive Date: 20190924
  Receipt Date: 20191222
  Transmission Date: 20200122
  Serious: No
  Sender: FDA-Public Use
  Company Number: US-ACORDA-ACO_160819_2019

PATIENT
  Sex: Male

DRUGS (2)
  1. INBRIJA [Suspect]
     Active Substance: LEVODOPA
     Indication: ON AND OFF PHENOMENON
  2. INBRIJA [Suspect]
     Active Substance: LEVODOPA
     Indication: PARKINSON^S DISEASE
     Dosage: 42 MG, 2 CAPSULES PRN, MAX 5 PER DAY
     Dates: start: 201905

REACTIONS (3)
  - Device difficult to use [Recovered/Resolved]
  - Memory impairment [Unknown]
  - Therapeutic product effect decreased [Unknown]
